FAERS Safety Report 13288447 (Version 1)
Quarter: 2017Q1

REPORT INFORMATION
  Report Type: Spontaneous
  Country: US (occurrence: US)
  Receive Date: 20170302
  Receipt Date: 20170302
  Transmission Date: 20170428
  Serious: Yes (Hospitalization)
  Sender: FDA-Public Use
  Company Number: US-ACTELION-A-NJ2017-150459

PATIENT
  Age: 64 Year
  Sex: Male

DRUGS (11)
  1. LIPITOR [Concomitant]
     Active Substance: ATORVASTATIN CALCIUM
  2. TORSEMIDE. [Concomitant]
     Active Substance: TORSEMIDE
  3. OPSUMIT [Suspect]
     Active Substance: MACITENTAN
     Indication: PULMONARY ARTERIAL HYPERTENSION
     Dosage: 10 MG, UNK
     Route: 048
  4. STELARA [Concomitant]
     Active Substance: USTEKINUMAB
  5. FERRO-SEQUELS [Concomitant]
  6. ULORIC [Concomitant]
     Active Substance: FEBUXOSTAT
  7. GLIPIZIDE. [Concomitant]
     Active Substance: GLIPIZIDE
  8. SILDENAFIL. [Concomitant]
     Active Substance: SILDENAFIL
  9. HUMALOG [Concomitant]
     Active Substance: INSULIN LISPRO
  10. METOLAZONE. [Concomitant]
     Active Substance: METOLAZONE
  11. VITAMIN D [Concomitant]
     Active Substance: CHOLECALCIFEROL

REACTIONS (4)
  - Cellulitis [Not Recovered/Not Resolved]
  - Urinary incontinence [Not Recovered/Not Resolved]
  - Tremor [Not Recovered/Not Resolved]
  - Dyspnoea [Not Recovered/Not Resolved]

NARRATIVE: CASE EVENT DATE: 20170215
